FAERS Safety Report 6379674-4 (Version None)
Quarter: 2009Q3

REPORT INFORMATION
  Report Type: 
  Country: None (occurrence: None)
  Receive Date: 20090928
  Receipt Date: 20090916
  Transmission Date: 20100115
  Serious: Yes (Hospitalization)
  Sender: FDA-Public Use
  Company Number: CA-PFIZER INC-2006143497

PATIENT
  Age: 66 Year

DRUGS (6)
  1. SUNITINIB MALATE [Suspect]
     Indication: RENAL CELL CARCINOMA
     Dosage: 50 MG, 1X/DAY
     Route: 048
     Dates: start: 20060329, end: 20061113
  2. ACCUPRIL [Concomitant]
     Route: 048
     Dates: start: 19960101
  3. LIPITOR [Concomitant]
     Route: 048
     Dates: start: 20010101
  4. NITROGLYCERIN [Concomitant]
     Route: 061
     Dates: start: 20060426
  5. ELTROXIN [Concomitant]
     Route: 048
     Dates: start: 20061030
  6. FUCIDINE CAP [Concomitant]
     Route: 061
     Dates: start: 20061023

REACTIONS (2)
  - DRUG INTERACTION [None]
  - LIVER INJURY [None]
